FAERS Safety Report 8290055-9 (Version None)
Quarter: 2012Q2

REPORT INFORMATION
  Report Type: 
  Country: None (occurrence: None)
  Receive Date: 20120417
  Receipt Date: 20120412
  Transmission Date: 20120825
  Serious: Yes (Hospitalization)
  Sender: FDA-Public Use
  Company Number: FR-PFIZER INC-2012090818

PATIENT
  Age: 85 Year
  Sex: Female

DRUGS (12)
  1. CITALOPRAM [Suspect]
     Dosage: 1 DF, UNK
     Route: 048
     Dates: start: 20110912, end: 20120121
  2. ATORVASTATIN [Concomitant]
     Dosage: 10 MG, UNK
  3. TRANSIPEG [Concomitant]
     Dosage: UNK
  4. PERINDOPRIL ERBUMINE [Concomitant]
     Dosage: 10 MG, UNK
  5. IMOVANE [Concomitant]
     Dosage: 3.75 MG, UNK
  6. ALDACTONE [Suspect]
     Dosage: 1 DF, DAILY
     Route: 048
     Dates: start: 20110912
  7. ASPIRIN [Concomitant]
     Dosage: 75 MG, UNK
  8. POTASSIUM CHLORIDE [Concomitant]
     Dosage: UNK
  9. GAVISCON [Concomitant]
     Dosage: UNK
  10. CORDARONE [Concomitant]
     Dosage: UNK
  11. NITROGLYCERIN [Concomitant]
     Dosage: 10 MG/24H
  12. LASIX [Concomitant]
     Dosage: 40 MG, UNK

REACTIONS (2)
  - HYPONATRAEMIA [None]
  - FALL [None]
